FAERS Safety Report 7815078-2 (Version None)
Quarter: 2011Q4

REPORT INFORMATION
  Report Type: 
  Country: None (occurrence: None)
  Receive Date: 20111014
  Receipt Date: 20111014
  Transmission Date: 20120403
  Serious: Yes (Hospitalization, Other)
  Sender: FDA-Public Use
  Company Number: None

PATIENT
  Sex: Female

DRUGS (1)
  1. RECLAST [Suspect]
     Indication: OSTEOPOROTIC FRACTURE
     Dates: start: 20110908, end: 20110908

REACTIONS (14)
  - PYREXIA [None]
  - JOINT LOCK [None]
  - TOOTHACHE [None]
  - EYE PAIN [None]
  - MUSCLE SPASMS [None]
  - ABASIA [None]
  - PAIN IN JAW [None]
  - PARAESTHESIA [None]
  - PAIN IN EXTREMITY [None]
  - HEADACHE [None]
  - SENSATION OF PRESSURE [None]
  - ARTHRALGIA [None]
  - INFLAMMATION [None]
  - BONE PAIN [None]
